FAERS Safety Report 5392652-7 (Version None)
Quarter: 2007Q3

REPORT INFORMATION
  Report Type: 
  Country: None (occurrence: None)
  Receive Date: 20070720
  Receipt Date: 20070710
  Transmission Date: 20080115
  Serious: Yes (Hospitalization)
  Sender: FDA-Public Use
  Company Number: BE-ABBOTT-07P-013-0357586-00

PATIENT
  Sex: Male

DRUGS (23)
  1. HUMIRA [Suspect]
     Indication: RHEUMATOID ARTHRITIS
     Dates: start: 20060401
  2. GLUCADOL [Concomitant]
     Indication: DRUG USE FOR UNKNOWN INDICATION
  3. ACETYLSALICYLIC ACID SRT [Concomitant]
     Indication: DRUG USE FOR UNKNOWN INDICATION
  4. ROSIGLITAZONE MALEATE [Concomitant]
     Indication: DRUG USE FOR UNKNOWN INDICATION
  5. DCURE + CA2 + [Concomitant]
     Indication: DRUG USE FOR UNKNOWN INDICATION
  6. CLOTIAZEPAM [Concomitant]
     Indication: DRUG USE FOR UNKNOWN INDICATION
  7. CO-APROVEL [Concomitant]
     Indication: DRUG USE FOR UNKNOWN INDICATION
     Dates: end: 20061001
  8. FEROGRADUMET [Concomitant]
     Indication: DRUG USE FOR UNKNOWN INDICATION
  9. BARNIDIPINE HYDROCHLORIDE [Concomitant]
     Indication: DRUG USE FOR UNKNOWN INDICATION
  10. BARNIDIPINE HYDROCHLORIDE [Concomitant]
  11. GLIQUIDONE [Concomitant]
     Indication: DRUG USE FOR UNKNOWN INDICATION
  12. METHYLDOPA [Concomitant]
     Indication: DRUG USE FOR UNKNOWN INDICATION
  13. ATENOLOL [Concomitant]
     Indication: DRUG USE FOR UNKNOWN INDICATION
  14. BUMETANIDE [Concomitant]
     Indication: DRUG USE FOR UNKNOWN INDICATION
  15. IRBESARTAN [Concomitant]
     Indication: DRUG USE FOR UNKNOWN INDICATION
  16. CALCIUM-SANDOZ [Concomitant]
     Indication: DRUG USE FOR UNKNOWN INDICATION
  17. PRAVASTATIN SODIUM [Concomitant]
     Indication: DRUG USE FOR UNKNOWN INDICATION
  18. CACO3 [Concomitant]
     Indication: DRUG USE FOR UNKNOWN INDICATION
  19. COLECALCIFEROL [Concomitant]
     Indication: DRUG USE FOR UNKNOWN INDICATION
  20. AZATHIOPRINE [Concomitant]
     Indication: DRUG USE FOR UNKNOWN INDICATION
  21. NULYTELY [Concomitant]
     Indication: DRUG USE FOR UNKNOWN INDICATION
  22. ATENOLOL [Concomitant]
  23. SENNA ALEXANDRINA [Concomitant]
     Indication: DRUG USE FOR UNKNOWN INDICATION

REACTIONS (5)
  - ARTERIAL DISORDER [None]
  - CARDIAC MURMUR FUNCTIONAL [None]
  - CONSTIPATION [None]
  - FLATULENCE [None]
  - OEDEMA PERIPHERAL [None]
